FAERS Safety Report 10106588 (Version 2)
Quarter: 2014Q2

REPORT INFORMATION
  Report Type: Other
  Country: US (occurrence: US)
  Receive Date: 20140424
  Receipt Date: 20140625
  Transmission Date: 20141212
  Serious: Yes (Hospitalization, Other)
  Sender: FDA-Public Use
  Company Number: US-GSKPPD-2014GSK004254

PATIENT
  Age: 70 Year
  Sex: Male

DRUGS (5)
  1. AVANDIA [Suspect]
     Indication: DIABETES MELLITUS
     Dosage: DATES OF AVANDIA USE COULD NOT BE CONFIRMED IN RECORDS REVIEWED.
     Route: 048
  2. PLAVIX [Concomitant]
     Route: 048
  3. COREG [Concomitant]
     Route: 048
  4. COUMADIN [Concomitant]
     Route: 048
  5. LOTENSIN [Concomitant]
     Route: 048

REACTIONS (1)
  - Acute myocardial infarction [Recovered/Resolved]
